FAERS Safety Report 25608384 (Version 1)
Quarter: 2025Q3

REPORT INFORMATION
  Report Type: Spontaneous
  Country: EU (occurrence: EU)
  Receive Date: 20250726
  Receipt Date: 20250726
  Transmission Date: 20251020
  Serious: Yes (Hospitalization)
  Sender: ALEXION PHARMACEUTICALS
  Company Number: None

PATIENT
  Age: 61 Year
  Sex: Female

DRUGS (1)
  1. BUDESONIDE\FORMOTEROL\GLYCOPYRRONIUM [Suspect]
     Active Substance: BUDESONIDE\FORMOTEROL\GLYCOPYRRONIUM
     Indication: Asthma
     Dosage: 2 ANNOSTA AAMUIN ILLOIN, TILANJATKEELLA OTETTUNA. /2 DOSES IN THE MORNING AND EVENING, WITH A SPACER
     Dates: start: 202505

REACTIONS (3)
  - Pruritus [Recovering/Resolving]
  - Dry skin [Recovering/Resolving]
  - Skin discolouration [Recovering/Resolving]
